FAERS Safety Report 21897119 (Version 1)
Quarter: 2023Q1

REPORT INFORMATION
  Report Type: Spontaneous
  Country: GB (occurrence: GB)
  Receive Date: 20230123
  Receipt Date: 20230123
  Transmission Date: 20230417
  Serious: Yes (Hospitalization, Other)
  Sender: FDA-Public Use
  Company Number: None

PATIENT

DRUGS (1)
  1. SUMATRIPTAN SUCCINATE [Suspect]
     Active Substance: SUMATRIPTAN SUCCINATE
     Indication: Product used for unknown indication
     Dosage: UNK, 3MG/0.5ML, PRE-FILLED DISPOSABLE DEVICES
     Route: 065

REACTIONS (2)
  - Rash erythematous [Recovered/Resolved]
  - Hypersensitivity [Unknown]
